FAERS Safety Report 5319098-1 (Version None)
Quarter: 2007Q2

REPORT INFORMATION
  Report Type: 
  Country: None (occurrence: None)
  Receive Date: 20070508
  Receipt Date: 20070504
  Transmission Date: 20071010
  Serious: Yes (Disabling, Other)
  Sender: FDA-Public Use
  Company Number: A0645241A

PATIENT
  Age: 69 Year
  Sex: Male
  Weight: 102.3 kg

DRUGS (6)
  1. AVANDAMET [Suspect]
     Route: 048
     Dates: start: 20061201, end: 20070321
  2. JANUVIA [Concomitant]
     Dosage: 100MG PER DAY
     Route: 048
  3. ASPIRIN [Concomitant]
     Route: 048
  4. COZAAR [Concomitant]
     Route: 048
  5. ZYRTEC [Concomitant]
  6. PREVACID [Concomitant]

REACTIONS (5)
  - ARTHRALGIA [None]
  - BACK PAIN [None]
  - JOINT STIFFNESS [None]
  - MUSCLE SPASMS [None]
  - OEDEMA PERIPHERAL [None]
